FAERS Safety Report 23701904 (Version 1)
Quarter: 2024Q2

REPORT INFORMATION
  Report Type: Spontaneous
  Country: FR (occurrence: FR)
  Receive Date: 20240403
  Receipt Date: 20240403
  Transmission Date: 20240716
  Serious: Yes (Life-Threatening, Hospitalization, Other)
  Sender: FDA-Public Use
  Company Number: None

PATIENT
  Age: 64 Year
  Sex: Male
  Weight: 70 kg

DRUGS (2)
  1. LOVENOX [Suspect]
     Active Substance: ENOXAPARIN SODIUM
     Indication: Heart valve operation
     Dosage: 16000 IU, QD, 8000IU X2/DAY
     Route: 058
     Dates: start: 20240108
  2. WARFARIN SODIUM [Suspect]
     Active Substance: WARFARIN SODIUM
     Indication: Heart valve operation
     Dosage: 5 MG, QD
     Route: 048
     Dates: start: 20240108

REACTIONS (2)
  - Haematoma muscle [Recovered/Resolved with Sequelae]
  - Shock haemorrhagic [Recovered/Resolved]

NARRATIVE: CASE EVENT DATE: 20240112
